FAERS Safety Report 8785628 (Version 1)
Quarter: 2012Q4

REPORT INFORMATION
  Report Type: 
  Country: US (occurrence: US)
  Receive Date: 20120914
  Receipt Date: 20120914
  Transmission Date: 20130627
  Serious: Yes (Other)
  Sender: FDA-Public Use
  Company Number: US-009507513-1209USA003349

PATIENT

DRUGS (4)
  1. ISENTRESS [Suspect]
  2. CELSENTRI [Suspect]
     Dosage: 150 mg, bid
     Route: 048
  3. PREZISTA [Suspect]
  4. EPZICOM [Suspect]
     Route: 048

REACTIONS (3)
  - White blood cell count decreased [Unknown]
  - Bone marrow failure [Unknown]
  - Neutrophil count decreased [Unknown]
